FAERS Safety Report 9045813 (Version 1)
Quarter: 2013Q1

REPORT INFORMATION
  Report Type: Report from Study
  Country: US (occurrence: US)
  Receive Date: 20130201
  Receipt Date: 20130201
  Transmission Date: 20140127
  Serious: No
  Sender: FDA-Public Use
  Company Number: US-ABBOTT-12P-163-1009722-00

PATIENT
  Age: 38 None
  Sex: Male
  Weight: 72.64 kg

DRUGS (2)
  1. HUMIRA [Suspect]
     Indication: REITER^S SYNDROME
     Dates: start: 20121116
  2. ARAVA [Concomitant]
     Indication: REITER^S SYNDROME

REACTIONS (4)
  - Off label use [Not Recovered/Not Resolved]
  - Needle issue [Unknown]
  - Wrong technique in drug usage process [Unknown]
  - Incorrect dose administered [Unknown]
